FAERS Safety Report 10006274 (Version 1)
Quarter: 2014Q1

REPORT INFORMATION
  Report Type: Spontaneous
  Country: GB (occurrence: GB)
  Receive Date: 20140313
  Receipt Date: 20140313
  Transmission Date: 20141002
  Serious: Yes (Other)
  Sender: FDA-Public Use
  Company Number: GB-ASTRAZENECA-2014SE16144

PATIENT
  Age: 83 Year
  Sex: Male
  Weight: 88 kg

DRUGS (10)
  1. OMEPRAZOLE [Suspect]
     Indication: HIATUS HERNIA
     Route: 048
     Dates: start: 20131128, end: 20140124
  2. ADIZEM-XL [Concomitant]
  3. AMOXICILLIN [Concomitant]
  4. ASPIRIN [Concomitant]
  5. BENDROFLUMETHIAZIDE [Concomitant]
  6. CLARITHROMYCIN [Concomitant]
  7. FINASTERIDE [Concomitant]
  8. ISOSORBIDE [Concomitant]
  9. PERINDOPRIL ERBUMINE [Concomitant]
  10. PROPRANOLOL HYDROCHLORIDE [Concomitant]

REACTIONS (3)
  - Weight decreased [Unknown]
  - Transaminases increased [Recovered/Resolved]
  - Malaise [Unknown]
